FAERS Safety Report 4528652-6 (Version None)
Quarter: 2004Q4

REPORT INFORMATION
  Report Type: 
  Country: None (occurrence: None)
  Receive Date: 20041216
  Receipt Date: 20041207
  Transmission Date: 20050328
  Serious: Yes (Hospitalization)
  Sender: FDA-Public Use
  Company Number: US-JNJFOC-20041005638

PATIENT
  Sex: Female
  Weight: 75.75 kg

DRUGS (12)
  1. NATRECOR [Suspect]
     Route: 042
  2. NATRECOR [Suspect]
     Route: 042
  3. LASIX [Concomitant]
  4. AVAPRO [Concomitant]
  5. COREG [Concomitant]
  6. SYNTHROID [Concomitant]
  7. GLYBURIDE [Concomitant]
  8. RIDENOL [Concomitant]
  9. ALDACTONE [Concomitant]
  10. ZOCOR [Concomitant]
  11. COUMADIN [Concomitant]
  12. PROTONIX [Concomitant]

REACTIONS (4)
  - ANOREXIA [None]
  - CARDIAC FAILURE CONGESTIVE [None]
  - FATIGUE [None]
  - NAUSEA [None]
